FAERS Safety Report 5234281-1 (Version None)
Quarter: 2007Q1

REPORT INFORMATION
  Report Type: 
  Country: None (occurrence: None)
  Receive Date: 20070209
  Receipt Date: 20070202
  Transmission Date: 20070707
  Serious: Yes (Hospitalization)
  Sender: FDA-Public Use
  Company Number: PHRM2007FR00735

PATIENT
  Age: 72 Year
  Sex: Female

DRUGS (6)
  1. VOLTAREN [Suspect]
     Route: 048
     Dates: start: 20061113, end: 20061128
  2. METHOTREXATE [Suspect]
     Indication: RHEUMATOID ARTHRITIS
     Dosage: 15 MG, UNK
     Route: 030
     Dates: end: 20061128
  3. METFORMIN HCL [Concomitant]
     Dosage: UNK, UNK
     Route: 048
  4. DAONIL [Concomitant]
     Route: 048
     Dates: end: 20061128
  5. CIPROFLOXACIN [Concomitant]
     Dates: start: 20061101
  6. ROCEPHIN [Concomitant]
     Dates: start: 20061101

REACTIONS (6)
  - ANAEMIA [None]
  - CYTOLYTIC HEPATITIS [None]
  - DRUG INTERACTION [None]
  - EOSINOPHILIA [None]
  - PANCYTOPENIA [None]
  - TRANSAMINASES INCREASED [None]
